FAERS Safety Report 9675501 (Version 1)
Quarter: 2013Q4

REPORT INFORMATION
  Report Type: Spontaneous
  Country: US (occurrence: US)
  Receive Date: 20131107
  Receipt Date: 20131107
  Transmission Date: 20140711
  Serious: No
  Sender: FDA-Public Use
  Company Number: US-009507513-1310USA009987

PATIENT
  Age: 18 Year
  Sex: Female
  Weight: 45.35 kg

DRUGS (1)
  1. NEXPLANON [Suspect]
     Indication: CONTRACEPTION
     Dosage: UNK
     Dates: start: 20130201

REACTIONS (3)
  - Blood iron decreased [Unknown]
  - Vaginal haemorrhage [Unknown]
  - Pain in extremity [Unknown]
